FAERS Safety Report 9442971 (Version 1)
Quarter: 2013Q3

REPORT INFORMATION
  Report Type: Spontaneous
  Country: US (occurrence: None)
  Receive Date: 20130805
  Receipt Date: 20130805
  Transmission Date: 20140515
  Serious: Yes (Other)
  Sender: FDA-Public Use
  Company Number: None

PATIENT
  Age: 37 Year
  Sex: Female
  Weight: 86.18 kg

DRUGS (1)
  1. DEXTROAMP-AMPHET ER CAP 20 MG ACTAVI S ELIZABETH LLC [Suspect]
     Indication: ATTENTION DEFICIT/HYPERACTIVITY DISORDER
     Dates: start: 20130717, end: 20130803

REACTIONS (4)
  - Drug effect decreased [None]
  - Nausea [None]
  - Headache [None]
  - Product substitution issue [None]
